FAERS Safety Report 4783818-5 (Version None)
Quarter: 2005Q3

REPORT INFORMATION
  Report Type: 
  Country: None (occurrence: None)
  Receive Date: 20050928
  Receipt Date: 20050913
  Transmission Date: 20060218
  Serious: Yes (Other)
  Sender: FDA-Public Use
  Company Number: GBS050918435

PATIENT
  Age: 45 Year
  Sex: Male

DRUGS (1)
  1. ZYPREXA [Suspect]
     Indication: SCHIZOPHRENIA

REACTIONS (1)
  - MYOCARDIAL INFARCTION [None]
